FAERS Safety Report 9087187 (Version 1)
Quarter: 2013Q1

REPORT INFORMATION
  Report Type: Report from Study
  Country: CA (occurrence: CA)
  Receive Date: 20130131
  Receipt Date: 20130131
  Transmission Date: 20140127
  Serious: Yes (Hospitalization)
  Sender: FDA-Public Use
  Company Number: CA-JNJFOC-20130113530

PATIENT
  Age: 48 None
  Sex: Female

DRUGS (2)
  1. SIMPONI [Suspect]
     Indication: RHEUMATOID ARTHRITIS
     Dates: start: 20120823, end: 20120901
  2. SIMPONI [Suspect]
     Indication: RHEUMATOID ARTHRITIS
     Dates: start: 20121219

REACTIONS (2)
  - Vascular graft [Unknown]
  - Bacterial infection [Unknown]
